FAERS Safety Report 4304592-2 (Version None)
Quarter: 2004Q1

REPORT INFORMATION
  Report Type: 
  Country: None (occurrence: None)
  Receive Date: 20040226
  Receipt Date: 20040202
  Transmission Date: 20041129
  Serious: Yes (Death)
  Sender: FDA-Public Use
  Company Number: 200410415FR

PATIENT
  Age: 94 Year
  Sex: Female
  Weight: 70 kg

DRUGS (8)
  1. LANTUS [Suspect]
     Indication: DIABETES MELLITUS
     Route: 058
     Dates: start: 20031024
  2. LASILIX [Concomitant]
     Indication: CARDIAC FAILURE
     Route: 048
     Dates: start: 20031101, end: 20031229
  3. RISORDAN [Concomitant]
     Indication: CARDIAC FAILURE
     Dates: end: 20031101
  4. MODURETIC ^MSD^ [Concomitant]
     Indication: CARDIAC FAILURE
     Route: 048
     Dates: end: 20031229
  5. DIGOXIN [Concomitant]
     Indication: CARDIAC FAILURE
  6. NITROGLYCERIN [Concomitant]
     Indication: CARDIAC FAILURE
     Route: 003
     Dates: end: 20031101
  7. RENITEC [Concomitant]
     Indication: CARDIAC FAILURE
     Dates: end: 20031101
  8. SINTROM [Concomitant]
     Indication: CARDIAC FAILURE
     Route: 048
     Dates: end: 20031101

REACTIONS (5)
  - ANAEMIA [None]
  - BONE MARROW DEPRESSION [None]
  - CARDIAC FAILURE [None]
  - CONDITION AGGRAVATED [None]
  - PANCYTOPENIA [None]
